FAERS Safety Report 5512661-4 (Version None)
Quarter: 2007Q4

REPORT INFORMATION
  Report Type: 
  Country: None (occurrence: None)
  Receive Date: 20071108
  Receipt Date: 20071030
  Transmission Date: 20080405
  Serious: Yes (Other)
  Sender: FDA-Public Use
  Company Number: 2007SP022050

PATIENT
  Age: 40 Year
  Sex: Female

DRUGS (4)
  1. PEG-INTRON [Suspect]
     Indication: HEPATITIS C
     Dosage: ;SC; SC
     Route: 058
     Dates: start: 20061024, end: 20061114
  2. PEG-INTRON [Suspect]
     Indication: HEPATITIS C
     Dosage: ;SC; SC
     Route: 058
     Dates: start: 20070831
  3. RIBAVIRIN [Suspect]
     Indication: HEPATITIS C
     Dosage: ;PO ;PO
     Route: 048
     Dates: start: 20061024, end: 20061114
  4. RIBAVIRIN [Suspect]
     Indication: HEPATITIS C
     Dosage: ;PO ;PO
     Route: 048
     Dates: start: 20070831

REACTIONS (5)
  - DECREASED APPETITE [None]
  - DEHYDRATION [None]
  - DRUG INEFFECTIVE [None]
  - NAUSEA [None]
  - VOMITING [None]
